FAERS Safety Report 6539657-8 (Version None)
Quarter: 2010Q1

REPORT INFORMATION
  Report Type: 
  Country: None (occurrence: None)
  Receive Date: 20100115
  Receipt Date: 20100108
  Transmission Date: 20100710
  Serious: Yes (Other)
  Sender: FDA-Public Use
  Company Number: GR-ROCHE-678620

PATIENT
  Sex: Female
  Weight: 93 kg

DRUGS (4)
  1. TOCILIZUMAB [Suspect]
     Indication: RHEUMATOID ARTHRITIS
     Dosage: LAST DOSE PRIOR TO SAE: 22 DEC 2009, PERMANENTLY DISCONTINUED
     Route: 042
     Dates: start: 20090922, end: 20091224
  2. METHOTREXATE [Concomitant]
     Dates: start: 20070301
  3. FILICINE [Concomitant]
     Dosage: NAME RPTD AS ^FILICIN^
     Dates: start: 20070301
  4. LEVOTHYROXINE SODIUM [Concomitant]
     Dates: start: 20050101

REACTIONS (1)
  - BREAST CANCER [None]
